FAERS Safety Report 5670336-5 (Version None)
Quarter: 2008Q1

REPORT INFORMATION
  Report Type: 
  Country: None (occurrence: None)
  Receive Date: 20080314
  Receipt Date: 20080314
  Transmission Date: 20080703
  Serious: Yes (Life-Threatening, Other)
  Sender: FDA-Public Use
  Company Number: None

PATIENT
  Age: 52 Year
  Sex: Female
  Weight: 73.4827 kg

DRUGS (2)
  1. BYETTA [Suspect]
     Indication: DIABETES MELLITUS
     Dosage: 10 TWICE A DAY SQ
     Route: 058
     Dates: start: 20070401, end: 20080313
  2. BYETTA [Suspect]
     Indication: WEIGHT CONTROL
     Dosage: 10 TWICE A DAY SQ
     Route: 058
     Dates: start: 20070401, end: 20080313

REACTIONS (4)
  - HEPATIC NEOPLASM MALIGNANT [None]
  - LUNG NEOPLASM MALIGNANT [None]
  - PANCREATIC CARCINOMA [None]
  - WEIGHT DECREASED [None]
